FAERS Safety Report 6738751-6 (Version None)
Quarter: 2010Q2

REPORT INFORMATION
  Report Type: 
  Country: None (occurrence: None)
  Receive Date: 20100524
  Receipt Date: 20100517
  Transmission Date: 20101027
  Serious: Yes (Death)
  Sender: FDA-Public Use
  Company Number: TR-ELI_LILLY_AND_COMPANY-TR201005004411

PATIENT
  Sex: Male
  Weight: 94 kg

DRUGS (3)
  1. GEMCITABINE HCL [Suspect]
     Indication: NON-SMALL CELL LUNG CANCER
     Dosage: 1250 MG/M2, 2 IN 3 WEEKS
     Route: 042
     Dates: start: 20100113
  2. CETUXIMAB [Suspect]
     Indication: NON-SMALL CELL LUNG CANCER
     Dosage: 250 MG/M2, 1 IN 1 WEEK
     Route: 042
     Dates: start: 20100113
  3. CISPLATIN [Suspect]
     Indication: NON-SMALL CELL LUNG CANCER
     Dosage: 75 MG/M2, 1 IN 3 WEEKS
     Route: 042
     Dates: start: 20100113

REACTIONS (1)
  - PULMONARY HAEMORRHAGE [None]
